FAERS Safety Report 4282505-X (Version None)
Quarter: 2004Q1

REPORT INFORMATION
  Report Type: 
  Country: None (occurrence: None)
  Receive Date: 20040129
  Receipt Date: 20040117
  Transmission Date: 20041129
  Serious: Yes (Hospitalization, Other)
  Sender: FDA-Public Use
  Company Number: 2003007401

PATIENT
  Sex: Female
  Weight: 58.0604 kg

DRUGS (2)
  1. DILANTIN [Suspect]
     Indication: CONVULSION
     Dosage: (EVERY OTHER NIGHT), ORAL
     Route: 048
     Dates: start: 19830101
  2. ACETYLSALICYLIC ACID SRT [Concomitant]

REACTIONS (10)
  - ANXIETY [None]
  - CEREBROVASCULAR ACCIDENT [None]
  - CONVULSION [None]
  - DRUG LEVEL FLUCTUATING [None]
  - FEELING ABNORMAL [None]
  - NERVOUSNESS [None]
  - NEUROPATHY [None]
  - PAIN IN EXTREMITY [None]
  - PARAESTHESIA [None]
  - THINKING ABNORMAL [None]
